FAERS Safety Report 14756705 (Version 2)
Quarter: 2019Q2

REPORT INFORMATION
  Report Type: Spontaneous
  Country: US (occurrence: US)
  Receive Date: 20180413
  Receipt Date: 20190515
  Transmission Date: 20190711
  Serious: No
  Sender: FDA-Public Use
  Company Number: US-PFIZER INC-2018146013

PATIENT
  Age: 60 Year
  Sex: Female
  Weight: 75.75 kg

DRUGS (7)
  1. LOSARTAN. [Concomitant]
     Active Substance: LOSARTAN
     Indication: BLOOD PRESSURE ABNORMAL
     Dosage: 100 MG, 1X/DAY(100MG TABLET ONCE A DAY)
     Route: 048
     Dates: start: 2014
  2. VITAMIN B12 [Concomitant]
     Active Substance: CYANOCOBALAMIN
     Indication: VITAMIN B12 DECREASED
     Dosage: UNKNOWN DOSE INJECTION
     Dates: start: 20180406
  3. ZANTAC [Concomitant]
     Active Substance: RANITIDINE HYDROCHLORIDE
     Indication: GASTRIC DISORDER
     Dosage: 25 MG, 2X/DAY(25MG TABLET TWICE A DAY)
     Route: 048
     Dates: start: 2017
  4. VITAMIN D [Concomitant]
     Active Substance: VITAMIN D NOS
     Indication: VITAMIN D DECREASED
     Dosage: 70 MG, WEEKLY(70MG CAPSULE ONCE A WEEK)
     Route: 048
     Dates: start: 2016
  5. NORPACE CR [Suspect]
     Active Substance: DISOPYRAMIDE PHOSPHATE
     Indication: PALPITATIONS
     Dosage: 200 MG, 2X/DAY (100MG CAPSULE TWO CAPSULES EVERY 12 HOURS)
     Route: 048
     Dates: start: 201801
  6. NORPACE CR [Suspect]
     Active Substance: DISOPYRAMIDE PHOSPHATE
     Dosage: UNK
  7. METOPROLOL. [Concomitant]
     Active Substance: METOPROLOL
     Indication: BLOOD PRESSURE ABNORMAL
     Dosage: 50 MG, 1X/DAY(50MG TABLET ONCE A DAY)
     Route: 048
     Dates: start: 2014

REACTIONS (3)
  - Product dose omission [Unknown]
  - Dizziness [Unknown]
  - Headache [Not Recovered/Not Resolved]

NARRATIVE: CASE EVENT DATE: 20180402
